FAERS Safety Report 7336482-5 (Version None)
Quarter: 2011Q1

REPORT INFORMATION
  Report Type: 
  Country: None (occurrence: None)
  Receive Date: 20110307
  Receipt Date: 20110303
  Transmission Date: 20110831
  Serious: Yes (Death)
  Sender: FDA-Public Use
  Company Number: US-AMGEN-USASP2011012331

PATIENT
  Sex: Male

DRUGS (4)
  1. CARBOPLATIN [Concomitant]
  2. ETOPOSIDE [Concomitant]
  3. PACLITAXEL [Concomitant]
  4. NEUPOGEN [Suspect]
     Indication: NEUTROPENIA

REACTIONS (1)
  - DEATH [None]
